FAERS Safety Report 24878319 (Version 1)
Quarter: 2025Q1

REPORT INFORMATION
  Report Type: Spontaneous
  Country: US (occurrence: None)
  Receive Date: 20250122
  Receipt Date: 20250122
  Transmission Date: 20250408
  Serious: Yes (unspecified)
  Sender: FDA-CTU
  Company Number: None

PATIENT
  Age: 75 Year
  Sex: Female
  Weight: 98.1 kg

DRUGS (1)
  1. LEQEMBI [Suspect]
     Active Substance: LECANEMAB-IRMB
     Indication: Dementia Alzheimer^s type
     Dosage: OTHER FREQUENCY : EVERY TWO WEEKS;?
     Route: 041
     Dates: start: 20250122

REACTIONS (3)
  - Headache [None]
  - Infusion related reaction [None]
  - Blood pressure increased [None]

NARRATIVE: CASE EVENT DATE: 20250122
